FAERS Safety Report 4494934-X (Version None)
Quarter: 2004Q4

REPORT INFORMATION
  Report Type: 
  Country: None (occurrence: None)
  Receive Date: 20041105
  Receipt Date: 20041105
  Transmission Date: 20050328
  Serious: Yes (Other)
  Sender: FDA-Public Use
  Company Number: None

PATIENT
  Age: 25 Year
  Sex: Male
  Weight: 145.151 kg

DRUGS (2)
  1. SINGULAIR [Suspect]
     Indication: HYPERSENSITIVITY
     Dosage: 1 PILL DAILY
     Dates: start: 20020301, end: 20030101
  2. AMBIEN [Suspect]
     Indication: INSOMNIA
     Dosage: 1  1/2 PILL PLUS DAILY (10 MG)
     Dates: start: 20041001

REACTIONS (4)
  - DRY MOUTH [None]
  - DYSPNOEA [None]
  - HYPERHIDROSIS [None]
  - MEDICATION ERROR [None]
